FAERS Safety Report 7198331-8 (Version None)
Quarter: 2010Q4

REPORT INFORMATION
  Report Type: 
  Country: None (occurrence: None)
  Receive Date: 20101227
  Receipt Date: 20101215
  Transmission Date: 20110411
  Serious: Yes (Hospitalization, Other)
  Sender: FDA-Public Use
  Company Number: AU-ACTELION-A-CH2010-42426

PATIENT
  Sex: Female

DRUGS (4)
  1. TRACLEER [Suspect]
     Indication: PULMONARY ARTERIAL HYPERTENSION
     Dosage: 125 MG, BID
     Route: 048
     Dates: start: 20031121
  2. TRACLEER [Suspect]
     Dosage: 62.5 MG, BID
     Route: 048
     Dates: start: 20031020, end: 20031120
  3. SILDENAFIL [Concomitant]
  4. REMODULIN [Concomitant]

REACTIONS (10)
  - ACUTE PULMONARY OEDEMA [None]
  - CARDIAC TAMPONADE [None]
  - DISEASE PROGRESSION [None]
  - GENERAL ANAESTHESIA [None]
  - HIP ARTHROPLASTY [None]
  - PERICARDIOTOMY [None]
  - PULMONARY ARTERIAL HYPERTENSION [None]
  - PULMONARY HYPERTENSIVE CRISIS [None]
  - RESPIRATORY DISTRESS [None]
  - RIGHT VENTRICULAR FAILURE [None]
